FAERS Safety Report 16880264 (Version 1)
Quarter: 2019Q4

REPORT INFORMATION
  Report Type: Spontaneous
  Country: US (occurrence: US)
  Receive Date: 20190807
  Receipt Date: 20190807
  Transmission Date: 20200122
  Serious: No
  Sender: FDA-Public Use
  Company Number: None

PATIENT
  Sex: Female

DRUGS (2)
  1. IRINOTECAN INJ 40MG/2ML [Suspect]
     Active Substance: IRINOTECAN
     Dates: start: 201906
  2. ERBITUX [Concomitant]
     Active Substance: CETUXIMAB

REACTIONS (1)
  - Toxicity to various agents [None]
